FAERS Safety Report 20964988 (Version 1)
Quarter: 2022Q2

REPORT INFORMATION
  Report Type: Spontaneous
  Country: US (occurrence: US)
  Receive Date: 20220616
  Receipt Date: 20220616
  Transmission Date: 20220721
  Serious: Yes (Other)
  Sender: FDA-Public Use
  Company Number: US-SA-SAC20220613002171

PATIENT
  Age: 37 Year
  Sex: Female

DRUGS (1)
  1. ZANTAC [Suspect]
     Active Substance: RANITIDINE HYDROCHLORIDE
     Dosage: UNK (FREQUENCY-OTHER UNKNOWN AT THIS TIME)
     Dates: start: 199501, end: 201901

REACTIONS (1)
  - Breast cancer stage II [Recovered/Resolved]

NARRATIVE: CASE EVENT DATE: 20110701
